FAERS Safety Report 24560250 (Version 1)
Quarter: 2024Q4

REPORT INFORMATION
  Report Type: Spontaneous
  Country: DE (occurrence: DE)
  Receive Date: 20241029
  Receipt Date: 20241029
  Transmission Date: 20250115
  Serious: Yes (Hospitalization, Other)
  Sender: AUROBINDO
  Company Number: DE-DCGMA-24204075

PATIENT
  Age: 12 Year
  Sex: Male
  Weight: 35.5 kg

DRUGS (1)
  1. IBUPROFEN [Suspect]
     Active Substance: IBUPROFEN
     Indication: Pyrexia
     Dosage: 5 MILLILITER, ONCE A DAY (40 MG/ML, 0-0-5 MLDAILY DOSE: 5 ML EVERY 1 DAY)
     Route: 048
     Dates: start: 20240428, end: 20240429

REACTIONS (6)
  - Stevens-Johnson syndrome [Unknown]
  - Erythema multiforme [Unknown]
  - Drug eruption [Unknown]
  - Fixed eruption [Unknown]
  - Lip swelling [Unknown]
  - Mucosal inflammation [Unknown]

NARRATIVE: CASE EVENT DATE: 20240430
